FAERS Safety Report 7602715-0 (Version None)
Quarter: 2011Q3

REPORT INFORMATION
  Report Type: 
  Country: None (occurrence: None)
  Receive Date: 20110701
  Receipt Date: 20110620
  Transmission Date: 20111222
  Serious: Yes (Hospitalization, Other)
  Sender: FDA-Public Use
  Company Number: 2011P1007179

PATIENT
  Age: 83 Year
  Sex: Female

DRUGS (2)
  1. OXYCONTIN [Suspect]
     Dosage: 160 MG;QD;PO
     Route: 048
  2. HYDROCODONE BITARTRATE [Suspect]
     Dosage: 60 MG;QD;PO
     Route: 048

REACTIONS (14)
  - TORSADE DE POINTES [None]
  - STRESS CARDIOMYOPATHY [None]
  - BRADYCARDIA [None]
  - CARDIOMEGALY [None]
  - BRAIN NATRIURETIC PEPTIDE INCREASED [None]
  - CHRONIC OBSTRUCTIVE PULMONARY DISEASE [None]
  - AGITATION [None]
  - CONFUSIONAL STATE [None]
  - HYPOXIA [None]
  - VENTRICULAR TACHYCARDIA [None]
  - VENTRICULAR EXTRASYSTOLES [None]
  - ATRIAL FIBRILLATION [None]
  - DYSPNOEA [None]
  - HYPOTENSION [None]
